FAERS Safety Report 4609649-4 (Version None)
Quarter: 2005Q1

REPORT INFORMATION
  Report Type: 
  Country: None (occurrence: None)
  Receive Date: 20050314
  Receipt Date: 20050203
  Transmission Date: 20050727
  Serious: Yes (Death)
  Sender: FDA-Public Use
  Company Number: BUS-022005-006

PATIENT
  Age: 39 Year
  Sex: Male

DRUGS (5)
  1. BUSULFEX [Suspect]
     Dosage: 168MG/DAY (42MG/DOSE X 4 TIMES) -IV
     Route: 042
     Dates: start: 20031216, end: 20031219
  2. CYCLOPHOSPHAMIDE [Concomitant]
  3. PHENYTOIN [Concomitant]
  4. ALLOPURINOL [Concomitant]
  5. ANTIFUNGAL AGENTS [Concomitant]

REACTIONS (6)
  - ASCITES [None]
  - COAGULOPATHY [None]
  - HAEMORRHAGE INTRACRANIAL [None]
  - PULMONARY HAEMORRHAGE [None]
  - VENOOCCLUSIVE LIVER DISEASE [None]
  - WEIGHT INCREASED [None]
